FAERS Safety Report 15180445 (Version 4)
Quarter: 2020Q1

REPORT INFORMATION
  Report Type: Other
  Country: CA (occurrence: CA)
  Receive Date: 20180723
  Receipt Date: 20200205
  Transmission Date: 20200409
  Serious: Yes (Life-Threatening, Hospitalization, Other)
  Sender: FDA-Public Use
  Company Number: CA-PFIZER INC-2018291393

PATIENT
  Age: 2 Day
  Sex: Male
  Weight: 2 kg

DRUGS (19)
  1. FENTANYL CITRATE. [Suspect]
     Active Substance: FENTANYL CITRATE
     Indication: HYPOTONIA
     Dosage: 1-3 UG/KG, 1 EVERY 1 HOUR
     Route: 042
  2. FENTANYL CITRATE. [Suspect]
     Active Substance: FENTANYL CITRATE
     Dosage: 1 UG/KG, 1 EVERY 1 HOUR
     Route: 065
  3. FENTANYL CITRATE. [Suspect]
     Active Substance: FENTANYL CITRATE
     Dosage: 0.5 UG/KG, 1 EVERY 1 HOUR
     Route: 065
  4. SEVOFLURANE. [Concomitant]
     Active Substance: SEVOFLURANE
     Indication: ANAESTHESIA
  5. FENTANYL CITRATE. [Suspect]
     Active Substance: FENTANYL CITRATE
     Dosage: UNK
     Route: 041
  6. FENTANYL CITRATE. [Suspect]
     Active Substance: FENTANYL CITRATE
     Dosage: 0.1 UG/KG, 1 EVERY 1 HOUR
     Route: 065
  7. ROCURONIUM [Concomitant]
     Active Substance: ROCURONIUM BROMIDE
     Indication: ANAESTHESIA
  8. FENTANYL CITRATE. [Suspect]
     Active Substance: FENTANYL CITRATE
     Indication: PROCEDURAL PAIN
     Dosage: 0.5 UG/KG, UNK
     Route: 040
  9. FENTANYL CITRATE. [Suspect]
     Active Substance: FENTANYL CITRATE
     Dosage: UNK
     Route: 065
  10. FENTANYL CITRATE. [Suspect]
     Active Substance: FENTANYL CITRATE
     Dosage: 3 UG/KG, UNK
     Route: 042
  11. FENTANYL CITRATE. [Suspect]
     Active Substance: FENTANYL CITRATE
     Dosage: UNK
     Route: 041
  12. FENTANYL CITRATE. [Suspect]
     Active Substance: FENTANYL CITRATE
     Dosage: 3 UG/KG, UNK
     Route: 065
  13. FENTANYL CITRATE. [Suspect]
     Active Substance: FENTANYL CITRATE
     Dosage: 1-3 UG/KG, 1 EVERY 1 HOUR
     Route: 041
  14. FENTANYL CITRATE. [Suspect]
     Active Substance: FENTANYL CITRATE
     Indication: ANAESTHESIA
     Dosage: 0.5 -1 UG/KG, 1 EVERY 1 HOUR
     Route: 042
  15. FENTANYL CITRATE. [Suspect]
     Active Substance: FENTANYL CITRATE
     Indication: MAINTENANCE OF ANAESTHESIA
     Dosage: UNK
     Route: 042
  16. FENTANYL CITRATE. [Suspect]
     Active Substance: FENTANYL CITRATE
     Dosage: 0.1 UG/KG, 1 EVERY 1 HOUR
     Route: 065
  17. SEVOFLURANE. [Concomitant]
     Active Substance: SEVOFLURANE
     Indication: HYPOTONIA
     Dosage: UNK
     Route: 065
  18. FENTANYL CITRATE. [Suspect]
     Active Substance: FENTANYL CITRATE
     Dosage: UNK
     Route: 040
  19. ROCURONIUM [Concomitant]
     Active Substance: ROCURONIUM BROMIDE
     Indication: HYPOTONIA
     Dosage: UNK
     Route: 065

REACTIONS (8)
  - Hypercapnia [Recovered/Resolved]
  - Neonatal tachypnoea [Recovered/Resolved]
  - Sedation complication [Recovered/Resolved]
  - Neonatal respiratory depression [Recovered/Resolved]
  - Stridor [Recovered/Resolved]
  - Atelectasis neonatal [Recovered/Resolved]
  - Drug ineffective [Unknown]
  - Tracheomalacia [Recovered/Resolved]
